FAERS Safety Report 12541384 (Version 1)
Quarter: 2016Q3

REPORT INFORMATION
  Report Type: Spontaneous
  Country: CN (occurrence: CN)
  Receive Date: 20160708
  Receipt Date: 20160708
  Transmission Date: 20161109
  Serious: Yes (Hospitalization, Other)
  Sender: FDA-Public Use
  Company Number: CN-JNJFOC-20160626744

PATIENT

DRUGS (3)
  1. IBUPROFEN. [Suspect]
     Active Substance: IBUPROFEN
     Indication: PATENT DUCTUS ARTERIOSUS
     Route: 065
  2. IBUPROFEN. [Suspect]
     Active Substance: IBUPROFEN
     Indication: PATENT DUCTUS ARTERIOSUS
     Dosage: ANOTHER 2 DOSES WERE GIVEN RESPECTIVELY 24H AND 48H LATER AT 5 MG/KG EVERY TIME
     Route: 065
  3. IBUPROFEN. [Suspect]
     Active Substance: IBUPROFEN
     Indication: PATENT DUCTUS ARTERIOSUS
     Dosage: ANOTHER 2 DOSES WERE GIVEN RESPECTIVELY 24H AND 48H LATER AT 5 MG/KG EVERY TIME
     Route: 065

REACTIONS (5)
  - Hyperbilirubinaemia [Unknown]
  - Oliguria [Unknown]
  - Off label use [Unknown]
  - Product use issue [Unknown]
  - Necrotising colitis [Unknown]
